FAERS Safety Report 14357135 (Version 4)
Quarter: 2018Q1

REPORT INFORMATION
  Report Type: Spontaneous
  Country: US (occurrence: US)
  Receive Date: 20180105
  Receipt Date: 20180206
  Transmission Date: 20180509
  Serious: No
  Sender: FDA-Public Use
  Company Number: US-PFIZER INC-2017378760

PATIENT
  Age: 49 Year
  Sex: Female
  Weight: 62 kg

DRUGS (10)
  1. MELOXICAM. [Concomitant]
     Active Substance: MELOXICAM
     Indication: ARTHRALGIA
     Dosage: 15 MG, DAILY (1 TABLET AT NIGHT DAILY)
  2. SKELAXIN [Concomitant]
     Active Substance: METAXALONE
     Dosage: 800 MG, 4X/DAY
     Dates: start: 201711
  3. PREMARIN [Suspect]
     Active Substance: ESTROGENS, CONJUGATED
     Indication: MENOPAUSAL DISORDER
     Dosage: DAILY FOR THREE WEEKS, 1 WEEK OFF 30 DAYS
     Route: 067
  4. FLUTICASONE PROPIONATE. [Concomitant]
     Active Substance: FLUTICASONE PROPIONATE
     Indication: SINUS DISORDER
     Dosage: UNK (2 SPRAYS A DAY EACH NOSTRIL.)
  5. PREMARIN [Suspect]
     Active Substance: ESTROGENS, CONJUGATED
     Indication: SCAR EXCISION
     Dosage: UNK UNK, 1X/DAY (1 FULL APPLICATOR A NIGHT AND PUT PRODUCT ON FINGER AND APPLY AROUND VAGINAL AREA)
     Route: 067
     Dates: start: 201711, end: 201712
  6. LYRICA [Concomitant]
     Active Substance: PREGABALIN
     Dosage: 75 MG, AS NEEDED
  7. FLECTOR [Concomitant]
     Active Substance: DICLOFENAC EPOLAMINE
     Dosage: UNK, PATCH
     Route: 062
  8. OXYCODONE [Concomitant]
     Active Substance: OXYCODONE
     Indication: PAIN
     Dosage: 30 MG, 4X/DAY
     Dates: start: 2012
  9. METHOCARBAMOL. [Concomitant]
     Active Substance: METHOCARBAMOL
     Dosage: 750 MG, AS NEEDED (TAKES 1 THREE TO FOUR TIMES A DAY AS NEEDED)
  10. CIPRO [Concomitant]
     Active Substance: CIPROFLOXACIN HYDROCHLORIDE
     Indication: INFECTION

REACTIONS (6)
  - Vulvovaginal dryness [Recovered/Resolved]
  - Scar [Recovered/Resolved]
  - Vulvovaginal burning sensation [Recovered/Resolved]
  - Product use in unapproved indication [Unknown]
  - Vulvovaginal discomfort [Recovered/Resolved]
  - Vaginal disorder [Recovered/Resolved]

NARRATIVE: CASE EVENT DATE: 2017
